FAERS Safety Report 5037493-5 (Version None)
Quarter: 2006Q2

REPORT INFORMATION
  Report Type: 
  Country: None (occurrence: None)
  Receive Date: 20060628
  Receipt Date: 20060410
  Transmission Date: 20061013
  Serious: No
  Sender: FDA-Public Use
  Company Number: US-GLAXOSMITHKLINE-A0601907A

PATIENT
  Sex: Male

DRUGS (3)
  1. ALBUTEROL [Suspect]
     Indication: DRUG USE FOR UNKNOWN INDICATION
     Route: 065
  2. PROVENTIL [Suspect]
     Indication: DRUG USE FOR UNKNOWN INDICATION
     Route: 055
     Dates: start: 20060401
  3. SINGULAIR [Concomitant]
     Route: 065

REACTIONS (3)
  - BACK PAIN [None]
  - DYSPNOEA [None]
  - THROAT IRRITATION [None]
